FAERS Safety Report 4343050-6 (Version None)
Quarter: 2004Q2

REPORT INFORMATION
  Report Type: 
  Country: None (occurrence: None)
  Receive Date: 20040416
  Receipt Date: 20040405
  Transmission Date: 20050107
  Serious: Yes (Hospitalization)
  Sender: FDA-Public Use
  Company Number: US-JNJFOC-20040400908

PATIENT
  Age: 47 Year
  Sex: Female

DRUGS (9)
  1. INFLIXIMAB (INFLIXIMAB, RECOMBINANT) LYOPHILIZED POWDER [Suspect]
     Indication: RHEUMATOID ARTHRITIS
     Dosage: INTRAVENOUS
     Route: 042
     Dates: start: 20010214
  2. VIOXX [Concomitant]
  3. EFFEXOR [Concomitant]
  4. MIRCETTE (MARVELON) [Concomitant]
  5. PREDNISONE [Concomitant]
  6. IMITREX [Concomitant]
  7. TRAMADOL HCL [Concomitant]
  8. ACETAMINOPHEN [Concomitant]
  9. HYDROCODONE (HYDROCODONE) [Concomitant]

REACTIONS (7)
  - BEDRIDDEN [None]
  - HEPATITIS C [None]
  - IATROGENIC INJURY [None]
  - PERITONEAL HAEMATOMA [None]
  - PROCEDURAL COMPLICATION [None]
  - VASCULAR INJURY [None]
  - VIRAL LOAD INCREASED [None]
